FAERS Safety Report 16761410 (Version 1)
Quarter: 2019Q3

REPORT INFORMATION
  Report Type: Spontaneous
  Country: US (occurrence: US)
  Receive Date: 20190830
  Receipt Date: 20190830
  Transmission Date: 20191005
  Serious: Yes (Hospitalization, Other)
  Sender: FDA-Public Use
  Company Number: US-LANNETT COMPANY, INC.-US-2019LAN001064

PATIENT
  Age: 65 Year
  Sex: Female

DRUGS (11)
  1. BUTALBITAL, ACETAMINOPHEN, AND CAFFEINE [Suspect]
     Active Substance: ACETAMINOPHEN\BUTALBITAL\CAFFEINE
     Indication: MIGRAINE
     Dosage: 50/325/40 MG; Q 4 HOURS AROUND THE CLOCK
     Route: 048
  2. LOVENOX [Concomitant]
     Active Substance: ENOXAPARIN SODIUM
     Indication: PROPHYLAXIS
     Dosage: 70 MG, BID
  3. OXYCODONE HYDROCHLORIDE. [Concomitant]
     Active Substance: OXYCODONE HYDROCHLORIDE
     Indication: PAIN
     Dosage: 40 MG, EVERY 4 HOURS
     Route: 048
  4. SOTALOL. [Concomitant]
     Active Substance: SOTALOL
     Indication: ATRIAL FIBRILLATION
     Dosage: 80 MG, BID
     Route: 048
  5. FENTANYL TRANSDERMAL SYSTEM [Concomitant]
     Active Substance: FENTANYL
     Indication: PAIN
     Dosage: 100 MCG, PATCH CHANGE Q 3 DAYS
     Route: 062
  6. LAMICTAL XR [Concomitant]
     Active Substance: LAMOTRIGINE
     Indication: SEIZURE
     Dosage: 350 MG, QD
     Route: 048
  7. GAMMAGARD S/D [Concomitant]
     Active Substance: HUMAN IMMUNOGLOBULIN G
     Indication: IMMUNODEFICIENCY COMMON VARIABLE
     Dosage: UNK, UNK, INFUSION Q 2 WEEKS
     Route: 042
  8. DILAUDID [Concomitant]
     Active Substance: HYDROMORPHONE HYDROCHLORIDE
     Indication: PAIN
     Dosage: 20 MG, Q 4 HOURS
     Route: 048
  9. SYNTHROID [Concomitant]
     Active Substance: LEVOTHYROXINE SODIUM
     Indication: HYPOTHYROIDISM
     Dosage: 225 MCG, QD
     Route: 048
  10. BABY ASPIRIN [Concomitant]
     Active Substance: ASPIRIN
     Indication: PRODUCT USED FOR UNKNOWN INDICATION
     Dosage: 80 MG, QD
     Route: 048
  11. ACARBOSE. [Concomitant]
     Active Substance: ACARBOSE
     Indication: HYPOGLYCAEMIA
     Dosage: 25 MG, TID, WITH MEALS

REACTIONS (16)
  - Clostridium difficile infection [Recovered/Resolved]
  - Protein C deficiency [Unknown]
  - Meningitis [Recovered/Resolved]
  - Umbilical hernia [Recovered/Resolved]
  - Cholelithiasis [Recovered/Resolved]
  - Uterine leiomyoma [Recovered/Resolved]
  - Abdominal pain [Recovered/Resolved]
  - Pneumonia [Recovered/Resolved]
  - Hepatitis B [Recovered/Resolved]
  - Thrombosis [Recovered/Resolved]
  - Pancreatic carcinoma metastatic [Unknown]
  - Thyroid cancer [Recovered/Resolved]
  - Sedation [Recovered/Resolved]
  - Atrial fibrillation [Unknown]
  - Seizure [Unknown]
  - Immunodeficiency common variable [Recovered/Resolved]

NARRATIVE: CASE EVENT DATE: 1972
